FAERS Safety Report 16756068 (Version 2)
Quarter: 2019Q3

REPORT INFORMATION
  Report Type: Spontaneous
  Country: US (occurrence: US)
  Receive Date: 20190829
  Receipt Date: 20190829
  Transmission Date: 20191005
  Serious: Yes (Hospitalization)
  Sender: FDA-Public Use
  Company Number: US-CELGENEUS-USA-20190809114

PATIENT
  Sex: Male

DRUGS (1)
  1. ABRAXANE [Suspect]
     Active Substance: PACLITAXEL
     Indication: LUNG NEOPLASM
     Route: 065

REACTIONS (5)
  - Swelling [Unknown]
  - Infection [Unknown]
  - White blood cell count decreased [Unknown]
  - Muscle spasms [Unknown]
  - Diarrhoea [Unknown]
